FAERS Safety Report 24013380 (Version 2)
Quarter: 2025Q4

REPORT INFORMATION
  Report Type: Spontaneous
  Country: VN (occurrence: VN)
  Receive Date: 20240626
  Receipt Date: 20251028
  Transmission Date: 20260117
  Serious: Yes (Other)
  Sender: SANDOZ
  Company Number: VN-002147023-NVSC2024VN129357

PATIENT
  Age: 73 Year
  Sex: Female

DRUGS (2)
  1. ANASTROZOLE [Suspect]
     Active Substance: ANASTROZOLE
     Indication: Product used for unknown indication
     Dosage: 1 MG, QD
     Route: 048
     Dates: start: 202212
  2. RIBOCICLIB [Suspect]
     Active Substance: RIBOCICLIB
     Indication: Product used for unknown indication
     Dosage: 400 MG (2 TABLETS)
     Route: 048
     Dates: start: 202212

REACTIONS (5)
  - Leukopenia [Unknown]
  - Neutropenia [Unknown]
  - Fatigue [Unknown]
  - Drug ineffective [Unknown]
  - Therapy partial responder [Unknown]
